FAERS Safety Report 7973799-5 (Version None)
Quarter: 2011Q4

REPORT INFORMATION
  Report Type: 
  Country: None (occurrence: None)
  Receive Date: 20111213
  Receipt Date: 20111202
  Transmission Date: 20120403
  Serious: Yes (Disabling)
  Sender: FDA-Public Use
  Company Number: DK-ASTRAZENECA-2011SE57179

PATIENT
  Age: 435 Month
  Sex: Male
  Weight: 80 kg

DRUGS (11)
  1. LYRICA [Suspect]
     Indication: ANXIETY
     Route: 048
     Dates: start: 20091210, end: 20110826
  2. ATENODAN [Concomitant]
  3. NICORETTE [Concomitant]
  4. ALMINOX ^DAK^ [Concomitant]
  5. SEROQUEL XR [Suspect]
     Indication: ANXIETY
     Route: 048
     Dates: start: 20090130, end: 20110523
  6. PANTOPRAZOLE [Concomitant]
  7. RAMIPRIL [Concomitant]
  8. ESCITALOPRAM [Concomitant]
  9. VALPROIC ACID [Suspect]
     Indication: BIPOLAR DISORDER
     Route: 048
     Dates: start: 20090320, end: 20110427
  10. LITAREX [Concomitant]
  11. CETIRIZINE HCL [Concomitant]

REACTIONS (1)
  - ATONIC URINARY BLADDER [None]
